FAERS Safety Report 8623602-5 (Version None)
Quarter: 2012Q3

REPORT INFORMATION
  Report Type: 
  Country: None (occurrence: None)
  Receive Date: 20120827
  Receipt Date: 20120722
  Transmission Date: 20120928
  Serious: Yes (Other)
  Sender: FDA-Public Use
  Company Number: CA-ASTELLAS-2012US007216

PATIENT

DRUGS (2)
  1. ERLOTINIB HYDROCHLORIDE [Suspect]
     Indication: NASOPHARYNGEAL CANCER
     Dosage: 150 MG, UID/QD EVERY 4 WEEKS
     Route: 048
  2. GEMCITABINE HYDROCHLORIDE [Suspect]
     Indication: NASOPHARYNGEAL CANCER
     Dosage: 1000 MG/M2,  DAYS 1 AND 8 Q3W
     Route: 065

REACTIONS (2)
  - OFF LABEL USE [None]
  - PAIN [None]
